FAERS Safety Report 25584436 (Version 1)
Quarter: 2025Q3

REPORT INFORMATION
  Report Type: Spontaneous
  Country: JP (occurrence: JP)
  Receive Date: 20250721
  Receipt Date: 20250721
  Transmission Date: 20251021
  Serious: Yes (Other)
  Sender: VALIDUS
  Company Number: JP-VALIDUS PHARMACEUTICALS LLC-VLDS-RB-2025-00107

PATIENT
  Age: 12 Year
  Sex: Female

DRUGS (2)
  1. METOPROLOL TARTRATE [Suspect]
     Active Substance: METOPROLOL TARTRATE
     Indication: Thyrotoxic myopathy
     Route: 065
  2. METHIMAZOLE [Suspect]
     Active Substance: METHIMAZOLE
     Indication: Thyrotoxic myopathy
     Route: 065

REACTIONS (2)
  - Thyrotoxic myopathy [Recovered/Resolved]
  - Condition aggravated [Recovered/Resolved]
